FAERS Safety Report 8257842-4 (Version None)
Quarter: 2012Q2

REPORT INFORMATION
  Report Type: 
  Country: None (occurrence: None)
  Receive Date: 20120404
  Receipt Date: 20120326
  Transmission Date: 20120825
  Serious: Yes (Hospitalization, Disabling, Other)
  Sender: FDA-Public Use
  Company Number: TR-AMGEN-TURSP2011065947

PATIENT
  Age: 53 Year
  Sex: Female

DRUGS (1)
  1. ENBREL [Suspect]
     Indication: RHEUMATOID ARTHRITIS
     Dosage: 25 MG, ONCE IN FIVE DAYS
     Route: 058
     Dates: start: 20100330, end: 20111001

REACTIONS (4)
  - OEDEMA PERIPHERAL [None]
  - INJURY [None]
  - LOWER LIMB FRACTURE [None]
  - FALL [None]
